FAERS Safety Report 7774463-8 (Version None)
Quarter: 2011Q3

REPORT INFORMATION
  Report Type: 
  Country: None (occurrence: None)
  Receive Date: 20110923
  Receipt Date: 20110908
  Transmission Date: 20111222
  Serious: Yes (Other)
  Sender: FDA-Public Use
  Company Number: US-ROCHE-802556

PATIENT
  Age: 62 Year
  Sex: Female

DRUGS (1)
  1. VEMURAFENIB [Suspect]
     Route: 065
     Dates: start: 20110801

REACTIONS (1)
  - NEUTROPHILIC PANNICULITIS [None]
